FAERS Safety Report 6504250-X (Version None)
Quarter: 2009Q4

REPORT INFORMATION
  Report Type: 
  Country: None (occurrence: None)
  Receive Date: 20091217
  Receipt Date: 20081223
  Transmission Date: 20100525
  Serious: No
  Sender: FDA-Public Use
  Company Number: US-ABBOTT-08P-163-0495293-00

PATIENT
  Sex: Male
  Weight: 89.892 kg

DRUGS (2)
  1. HYTRIN [Suspect]
     Indication: HYPERTENSION
     Route: 048
  2. HYTRIN [Suspect]
     Indication: NOCTURIA

REACTIONS (1)
  - DIZZINESS [None]
